FAERS Safety Report 8431775-2 (Version None)
Quarter: 2012Q2

REPORT INFORMATION
  Report Type: 
  Country: None (occurrence: None)
  Receive Date: 20120613
  Receipt Date: 20120604
  Transmission Date: 20120825
  Serious: Yes (Hospitalization)
  Sender: FDA-Public Use
  Company Number: US-VERTEX PHARMACEUTICALS INC.-AE-2012-008391

PATIENT
  Sex: Female
  Weight: 90.8 kg

DRUGS (3)
  1. INCIVEK [Suspect]
     Indication: HEPATITIS C
     Route: 048
     Dates: start: 20120516, end: 20120530
  2. PEGASYS [Concomitant]
     Indication: HEPATITIS C
     Route: 058
     Dates: start: 20120516, end: 20120530
  3. RIBAVIRIN [Concomitant]
     Indication: HEPATITIS C
     Route: 048
     Dates: start: 20120516, end: 20120530

REACTIONS (4)
  - DIPLOPIA [None]
  - BALANCE DISORDER [None]
  - RENAL IMPAIRMENT [None]
  - DYSKINESIA [None]
